FAERS Safety Report 21126767 (Version 1)
Quarter: 2022Q3

REPORT INFORMATION
  Report Type: Spontaneous
  Country: IL (occurrence: IL)
  Receive Date: 20220725
  Receipt Date: 20220725
  Transmission Date: 20221026
  Serious: Yes (Other)
  Sender: FDA-Public Use
  Company Number: IL-ALKEM LABORATORIES LIMITED-IL-ALKEM-2022-06298

PATIENT
  Age: 2 Year
  Sex: Male

DRUGS (2)
  1. LACOSAMIDE [Suspect]
     Active Substance: LACOSAMIDE
     Indication: Lennox-Gastaut syndrome
     Dosage: MAXIMUM DOSE 18.2 MG/KG/DAY
     Route: 065
  2. ZONISAMIDE [Concomitant]
     Active Substance: ZONISAMIDE
     Indication: Lennox-Gastaut syndrome
     Dosage: UNK
     Route: 065

REACTIONS (4)
  - Seizure [Unknown]
  - Restlessness [Unknown]
  - Nausea [Unknown]
  - Crying [Unknown]
